FAERS Safety Report 4369992-3 (Version None)
Quarter: 2004Q2

REPORT INFORMATION
  Report Type: 
  Country: None (occurrence: None)
  Receive Date: 20040603
  Receipt Date: 20040526
  Transmission Date: 20050107
  Serious: Yes (Hospitalization)
  Sender: FDA-Public Use
  Company Number: US-GLAXOSMITHKLINE-A0512655A

PATIENT
  Age: 19 Year
  Sex: Female

DRUGS (1)
  1. PAXIL CR [Suspect]
     Indication: DEPRESSION
     Dosage: 25MG PER DAY
     Route: 048

REACTIONS (13)
  - AGGRESSION [None]
  - ANGER [None]
  - DEPRESSION [None]
  - DRUG WITHDRAWAL SYNDROME [None]
  - HOMICIDAL IDEATION [None]
  - IRRITABILITY [None]
  - NIGHTMARE [None]
  - SCAR [None]
  - SELF MUTILATION [None]
  - SKIN DISCOLOURATION [None]
  - STARING [None]
  - SUICIDAL IDEATION [None]
  - THINKING ABNORMAL [None]
